FAERS Safety Report 15261508 (Version 1)
Quarter: 2018Q3

REPORT INFORMATION
  Report Type: Spontaneous
  Country: US (occurrence: US)
  Receive Date: 20180809
  Receipt Date: 20180809
  Transmission Date: 20181010
  Serious: No
  Sender: FDA-Public Use
  Company Number: US-GLAXOSMITHKLINE-US2018140195

PATIENT
  Sex: Female

DRUGS (2)
  1. BENLYSTA [Suspect]
     Active Substance: BELIMUMAB
     Indication: PRODUCT USED FOR UNKNOWN INDICATION
     Dosage: 200 MG, UNK
     Route: 058
     Dates: start: 201805, end: 20180725
  2. BENLYSTA [Concomitant]
     Active Substance: BELIMUMAB
     Dosage: UNK
     Route: 042
     Dates: start: 20180308, end: 20180503

REACTIONS (4)
  - Injection site pain [Unknown]
  - Anxiety [Unknown]
  - Night sweats [Unknown]
  - Nightmare [Unknown]
